FAERS Safety Report 6600871-4 (Version None)
Quarter: 2010Q1

REPORT INFORMATION
  Report Type: 
  Country: None (occurrence: None)
  Receive Date: 20100225
  Receipt Date: 20091204
  Transmission Date: 20100710
  Serious: No
  Sender: FDA-Public Use
  Company Number: A0834647A

PATIENT
  Sex: Female

DRUGS (2)
  1. LAMICTAL CD [Suspect]
     Route: 065
  2. ESTROGEN [Suspect]
     Route: 065

REACTIONS (1)
  - MOOD ALTERED [None]
